FAERS Safety Report 17230027 (Version 1)
Quarter: 2019Q4

REPORT INFORMATION
  Report Type: Spontaneous
  Country: US (occurrence: US)
  Receive Date: 20191210
  Receipt Date: 20191210
  Transmission Date: 20200122
  Serious: No
  Sender: FDA-Public Use
  Company Number: None

PATIENT
  Sex: Female

DRUGS (12)
  1. AMPICLISOLIZE [Concomitant]
  2. BEFILME [Concomitant]
  3. PRILOSEC [Concomitant]
     Active Substance: OMEPRAZOLE MAGNESIUM
  4. PROZAC [Concomitant]
     Active Substance: FLUOXETINE HYDROCHLORIDE
  5. XANAX [Concomitant]
     Active Substance: ALPRAZOLAM
  6. ZOFRAN [Concomitant]
     Active Substance: ONDANSETRON HYDROCHLORIDE
  7. SUBOXONE [Suspect]
     Active Substance: BUPRENORPHINE HYDROCHLORIDE\NALOXONE HYDROCHLORIDE
     Indication: DRUG DEPENDENCE
     Dosage: ?          QUANTITY:60 DF DOSAGE FORM;?
     Route: 048
     Dates: start: 20191008, end: 20191010
  8. ANABUSE [Concomitant]
  9. LISINOPRIL. [Concomitant]
     Active Substance: LISINOPRIL
  10. ASPRIN [Concomitant]
     Active Substance: ASPIRIN
  11. SUBTEX [Concomitant]
  12. ALBUTEROL INHALER [Concomitant]
     Active Substance: ALBUTEROL

REACTIONS (5)
  - Hyperhidrosis [None]
  - Pharyngeal swelling [None]
  - Nausea [None]
  - Mouth swelling [None]
  - Rash erythematous [None]

NARRATIVE: CASE EVENT DATE: 20191010
